FAERS Safety Report 4693192-0 (Version None)
Quarter: 2005Q2

REPORT INFORMATION
  Report Type: 
  Country: None (occurrence: None)
  Receive Date: 20050617
  Receipt Date: 20050602
  Transmission Date: 20051028
  Serious: Yes (Hospitalization)
  Sender: FDA-Public Use
  Company Number: BR-JNJFOC-20050603482

PATIENT
  Age: 28 Year
  Sex: Female
  Weight: 58 kg

DRUGS (2)
  1. ORTHO EVRA [Suspect]
     Indication: CONTRACEPTION
     Route: 062
  2. GAMAX [Concomitant]
     Indication: BREAST PAIN

REACTIONS (5)
  - ANGIOPATHY [None]
  - BREAST PAIN [None]
  - HYPERTROPHY BREAST [None]
  - SEBORRHOEA [None]
  - URINARY TRACT INFECTION [None]
